FAERS Safety Report 10760719 (Version 1)
Quarter: 2015Q1

REPORT INFORMATION
  Report Type: Spontaneous
  Country: CA (occurrence: None)
  Receive Date: 20150202
  Receipt Date: 20150202
  Transmission Date: 20150721
  Serious: Yes (Other)
  Sender: FDA-Public Use
  Company Number: 20150003

PATIENT
  Age: 74 Year
  Sex: Male

DRUGS (16)
  1. ASPIRIN. [Concomitant]
     Active Substance: ASPIRIN
  2. VENTOLIN MDI [Concomitant]
  3. DEXIRON (IRON DEXTRAN INJECTION, USP) (0134C) (IRON DEXTRAN) 50 MG/ML FE+++ [Suspect]
     Active Substance: IRON DEXTRAN
     Indication: IRON DEFICIENCY ANAEMIA
     Route: 042
     Dates: start: 20141027, end: 20141103
  4. ZYPREXA (LANZAPINE) [Concomitant]
  5. NITROPATCH [Concomitant]
  6. ATORVASTATIN [Concomitant]
     Active Substance: ATORVASTATIN
  7. TRAVATAN (TRAVOPROST OPHTHALMIC SOLUTION) [Concomitant]
  8. WARFARIN [Concomitant]
     Active Substance: WARFARIN
  9. NITROSPRAY [Concomitant]
  10. AMLODIPINE [Concomitant]
     Active Substance: AMLODIPINE BESYLATE
  11. DEXIRON (IRON DEXTRAN INJECTION, USP) (0134C) (IRON DEXTRAN) 50 MG/ML FE+++ [Suspect]
     Active Substance: IRON DEXTRAN
     Route: 042
     Dates: start: 20141027, end: 20141103
  12. DOXACOSIN [Concomitant]
  13. ROPINOROLE [Concomitant]
  14. INSULIN 70/30 [Concomitant]
     Active Substance: INSULIN HUMAN
  15. JANUVIA [Concomitant]
     Active Substance: SITAGLIPTIN PHOSPHATE
  16. IRBESARTAN. [Concomitant]
     Active Substance: IRBESARTAN

REACTIONS (4)
  - Blood pressure increased [None]
  - Back pain [None]
  - Eye pain [None]
  - Headache [None]

NARRATIVE: CASE EVENT DATE: 20141103
